FAERS Safety Report 9855864 (Version 2)
Quarter: 2014Q1

REPORT INFORMATION
  Report Type: Spontaneous
  Country: GB (occurrence: GB)
  Receive Date: 20140130
  Receipt Date: 20140207
  Transmission Date: 20141002
  Serious: Yes (Hospitalization)
  Sender: FDA-Public Use
  Company Number: GB-ABBVIE-14P-167-1196100-00

PATIENT
  Age: 55 Year
  Sex: Female

DRUGS (3)
  1. RITONAVIR [Suspect]
     Indication: HIV INFECTION
     Route: 065
  2. ATAZANAVIR SULFATE [Interacting]
     Indication: HIV INFECTION
     Route: 065
  3. TRIAMCINOLONE ACETATE [Interacting]
     Indication: PRODUCT USED FOR UNKNOWN INDICATION
     Dosage: ROUTE  ED
     Dates: start: 2009

REACTIONS (2)
  - Cushing^s syndrome [Unknown]
  - Drug interaction [Unknown]
